FAERS Safety Report 9753180 (Version 1)
Quarter: 2013Q4

REPORT INFORMATION
  Report Type: Spontaneous
  Country: US (occurrence: US)
  Receive Date: 20131213
  Receipt Date: 20131213
  Transmission Date: 20140711
  Serious: No
  Sender: FDA-Public Use
  Company Number: US-GILEAD-2010-0026907

PATIENT
  Sex: Female
  Weight: 77.56 kg

DRUGS (21)
  1. LETAIRIS [Suspect]
     Indication: PULMONARY ARTERIAL HYPERTENSION
     Route: 048
     Dates: start: 20070813
  2. FLOLAN [Concomitant]
  3. COUMADIN [Concomitant]
  4. SPIRONOLACTONE [Concomitant]
  5. LASIX [Concomitant]
  6. AVAPRO [Concomitant]
  7. LIPITOR [Concomitant]
  8. HYDROXYZINE HCL [Concomitant]
  9. SINGULAIR [Concomitant]
  10. OXYGEN [Concomitant]
  11. XANAX [Concomitant]
  12. ALDACTONE [Concomitant]
  13. AMBIEN [Concomitant]
  14. OXYCODONE [Concomitant]
  15. CALCIUM CITRATE [Concomitant]
  16. ESTER C [Concomitant]
  17. CO Q-10 [Concomitant]
  18. N-ACETYL-L-CYSTEINE [Concomitant]
  19. SAM-E [Concomitant]
  20. OMEGA 3 FISH OIL [Concomitant]
  21. TYLENOL [Concomitant]

REACTIONS (1)
  - Lethargy [Unknown]
